FAERS Safety Report 5611972-1 (Version None)
Quarter: 2008Q1

REPORT INFORMATION
  Report Type: 
  Country: None (occurrence: None)
  Receive Date: 20080128
  Receipt Date: 20080115
  Transmission Date: 20080703
  Serious: Yes (Hospitalization)
  Sender: FDA-Public Use
  Company Number: 2008005518

PATIENT
  Age: 46 Year
  Sex: Female

DRUGS (31)
  1. FRAGMIN [Suspect]
     Indication: THROMBOSIS PROPHYLAXIS
     Dosage: 2500 I.U., SUBCUTANEOUS
     Route: 058
     Dates: start: 20031128
  2. COTRIMHEXAL FORTE (SULFAMETHOXAZOLE, TRIMETHOPRIM) [Suspect]
     Indication: URINARY TRACT INFECTION
     Dosage: 1 IN 1 D, ORAL
     Route: 048
     Dates: start: 20031216
  3. PASPERTIN (METOCLOPRAMIDE HYDROCHLORIDE) [Suspect]
     Indication: NAUSEA
     Dosage: 10 MG, ORAL
     Route: 048
     Dates: start: 20031201, end: 20031201
  4. METOCLOPRAMIDE [Suspect]
     Indication: NAUSEA
     Dosage: 60 DROP (20 DROP, 3 IN 1 D), ORAL
     Route: 048
     Dates: start: 20031202, end: 20031215
  5. DICLAC (DICLOFENAC SODIUM) [Suspect]
     Dosage: 100 MG (100 MG, 1 IN 1 D), RECTAL
     Route: 054
     Dates: start: 20031209, end: 20031213
  6. HYOSCINE HBR HYT [Suspect]
     Indication: MUSCLE SPASMS
     Dosage: RECTAL
     Route: 054
     Dates: start: 20031215, end: 20031225
  7. SOLIDAGO VIRGAUREA (SOLIDAGO VIRGAUREA) [Suspect]
     Dosage: ORAL
     Route: 048
     Dates: start: 20031218, end: 20031225
  8. HERBAL PREPARATION (HERBAL PREPARATION) [Suspect]
     Dosage: ORAL
     Route: 048
     Dates: start: 20031218, end: 20031228
  9. CONTRACEPTIVE, UNSPECIFIED (CONTRACEPTIVE, UNSPECIFIED) [Suspect]
  10. MULTIVITAMIN [Suspect]
     Dosage: ORAL
     Route: 048
     Dates: start: 20031215, end: 20031225
  11. DULCOLAX [Concomitant]
  12. LASIX [Concomitant]
  13. POTASSIUM CHLORIDE [Concomitant]
  14. DIPIDOLOR (PIRITRAMIDE) [Concomitant]
  15. METRONIDAZOLE [Concomitant]
  16. CLONIDINE [Concomitant]
  17. AMBROHEXAL (AMBROXOL HYDROCHLORIDE) [Concomitant]
  18. GLUCOSE (GLUCOSE) [Concomitant]
  19. RANITIDINE HCL [Concomitant]
  20. AMINO ACIDS NOS (AMINO ACIDS NOS) [Concomitant]
  21. STEROFUNDIN (ELECTROLYTES NOS) [Concomitant]
  22. SODIUM CHLORIDE 0.9% [Concomitant]
  23. TAVANIC (LEVOFLOXACIN) [Concomitant]
  24. NOVALGIN (METAMIZOLE SODIUM) [Concomitant]
  25. KONAKION [Concomitant]
  26. VITAMINS NOS (VITAMINS NOS) [Concomitant]
  27. LORAZEPAM [Concomitant]
  28. POTASSIUM CHLORIDE [Concomitant]
  29. TRAMAL (TRAMADOL HYDROCHLORIDE) [Concomitant]
  30. TEMAZEPAM [Concomitant]
  31. NOVALGIN (METAMIZOLE SODIUM) [Concomitant]

REACTIONS (1)
  - ERYTHEMA MULTIFORME [None]
